FAERS Safety Report 6748793-2 (Version None)
Quarter: 2010Q2

REPORT INFORMATION
  Report Type: 
  Country: None (occurrence: None)
  Receive Date: 20100601
  Receipt Date: 20100520
  Transmission Date: 20101027
  Serious: Yes (Hospitalization)
  Sender: FDA-Public Use
  Company Number: PHHO2010FR07675

PATIENT
  Sex: Female
  Weight: 80 kg

DRUGS (3)
  1. ALISKIREN ALI+TAB+CVR [Suspect]
     Indication: CARDIOVASCULAR DISORDER
     Dosage: 300 MG
     Route: 048
     Dates: start: 20090825
  2. ROCEPHIN [Concomitant]
  3. ROVAMYCINE [Concomitant]

REACTIONS (5)
  - CONCOMITANT DISEASE PROGRESSION [None]
  - DYSPNOEA EXERTIONAL [None]
  - LUNG DISORDER [None]
  - PULMONARY HYPERTENSION [None]
  - SICKLE CELL ANAEMIA [None]
